FAERS Safety Report 6338455-8 (Version None)
Quarter: 2009Q3

REPORT INFORMATION
  Report Type: 
  Country: None (occurrence: None)
  Receive Date: 20090901
  Receipt Date: 20090820
  Transmission Date: 20100115
  Serious: Yes (Hospitalization)
  Sender: FDA-Public Use
  Company Number: SPV1-2009-01557

PATIENT
  Age: 57 Year
  Sex: Female

DRUGS (2)
  1. CARBATROL [Suspect]
     Indication: TRIGEMINAL NEURALGIA
  2. COPAXONE [Suspect]
     Indication: MULTIPLE SCLEROSIS
     Dosage: 20 MG, SUBCUTANEOUS
     Route: 058
     Dates: start: 20090611

REACTIONS (14)
  - ASTHENIA [None]
  - ATAXIA [None]
  - CEREBROVASCULAR ACCIDENT [None]
  - CONDITION AGGRAVATED [None]
  - DIPLOPIA [None]
  - DRUG TOXICITY [None]
  - DYSARTHRIA [None]
  - FACIAL PAIN [None]
  - FALL [None]
  - FATIGUE [None]
  - HEAD INJURY [None]
  - HYPOTENSION [None]
  - SENSORY LOSS [None]
  - VISION BLURRED [None]
